FAERS Safety Report 5686170-6 (Version None)
Quarter: 2008Q1

REPORT INFORMATION
  Report Type: 
  Country: None (occurrence: None)
  Receive Date: 20080328
  Receipt Date: 20070808
  Transmission Date: 20080703
  Serious: No
  Sender: FDA-Public Use
  Company Number: US-BAYER-US-2007-029469

PATIENT
  Age: 40 Year
  Sex: Female
  Weight: 56 kg

DRUGS (5)
  1. MIRENA [Suspect]
     Indication: CONTRACEPTION
     Route: 015
     Dates: start: 20070613, end: 20070627
  2. ZOLOFT [Concomitant]
     Dosage: UNIT DOSE: 150 MG
  3. IBUPROFEN [Concomitant]
     Indication: JOINT INJURY
  4. PERCOCET [Concomitant]
     Indication: JOINT INJURY
  5. FLEXERIL [Concomitant]
     Indication: JOINT INJURY

REACTIONS (1)
  - INTRA-UTERINE CONTRACEPTIVE DEVICE EXPELLED [None]
